FAERS Safety Report 7077004-6 (Version None)
Quarter: 2010Q4

REPORT INFORMATION
  Report Type: 
  Country: None (occurrence: None)
  Receive Date: 20101101
  Receipt Date: 20101026
  Transmission Date: 20110411
  Serious: Yes (Life-Threatening)
  Sender: FDA-Public Use
  Company Number: JP-ROCHE-613578

PATIENT
  Sex: Female
  Weight: 31 kg

DRUGS (6)
  1. TOCILIZUMAB [Suspect]
     Indication: RHEUMATOID ARTHRITIS
     Route: 041
     Dates: start: 20081203, end: 20081203
  2. TOCILIZUMAB [Suspect]
     Route: 041
     Dates: start: 20081226, end: 20081226
  3. TOCILIZUMAB [Suspect]
     Dosage: DISCONTINUED.
     Route: 041
     Dates: start: 20090123, end: 20090123
  4. PREDNISOLONE [Concomitant]
     Route: 048
     Dates: start: 20070808
  5. RIFADIN [Concomitant]
     Route: 048
     Dates: start: 20070725
  6. CRAVIT [Concomitant]
     Route: 048
     Dates: start: 20070725

REACTIONS (1)
  - ATYPICAL MYCOBACTERIAL INFECTION [None]
